FAERS Safety Report 8200349-0 (Version None)
Quarter: 2012Q1

REPORT INFORMATION
  Report Type: 
  Country: None (occurrence: None)
  Receive Date: 20120312
  Receipt Date: 20120229
  Transmission Date: 20120608
  Serious: Yes (Other)
  Sender: FDA-Public Use
  Company Number: GB-NOVOPROD-338726

PATIENT
  Age: 48 Year
  Sex: Female
  Weight: 93.1 kg

DRUGS (2)
  1. LIRAGLUTIDE FLEXPEN [Suspect]
     Dosage: UNK
  2. LIRAGLUTIDE FLEXPEN [Suspect]
     Indication: OBESITY
     Dosage: UNK
     Dates: start: 20110830, end: 20111102

REACTIONS (1)
  - ABDOMINAL PAIN UPPER [None]
